FAERS Safety Report 21015681 (Version 1)
Quarter: 2022Q3

REPORT INFORMATION
  Report Type: Spontaneous
  Country: FR (occurrence: FR)
  Receive Date: 20220628
  Receipt Date: 20220628
  Transmission Date: 20221027
  Serious: Yes (Death, Other)
  Sender: FDA-Public Use
  Company Number: FR-NOVARTISPH-NVSC2022FR146565

PATIENT
  Age: 89 Year
  Sex: Female
  Weight: 71 kg

DRUGS (2)
  1. FULVESTRANT [Suspect]
     Active Substance: FULVESTRANT
     Indication: Hormone therapy
     Dosage: UNK
     Route: 048
     Dates: start: 20200220
  2. IBRANCE [Suspect]
     Active Substance: PALBOCICLIB
     Indication: Breast cancer
     Dosage: 125 MG, CYCLIC DAILY (21 DAYS OUT OF 28)
     Route: 065
     Dates: start: 20200227

REACTIONS (4)
  - General physical health deterioration [Fatal]
  - Weight decreased [Not Recovered/Not Resolved]
  - Productive cough [Unknown]
  - Gastrooesophageal reflux disease [Unknown]

NARRATIVE: CASE EVENT DATE: 20200311
